FAERS Safety Report 7273162-9 (Version None)
Quarter: 2011Q1

REPORT INFORMATION
  Report Type: 
  Country: None (occurrence: None)
  Receive Date: 20110203
  Receipt Date: 20101124
  Transmission Date: 20110831
  Serious: No
  Sender: FDA-Public Use
  Company Number: US-ABBOTT-10P-163-0687603-00

PATIENT
  Weight: 54.48 kg

DRUGS (4)
  1. MORPHINE SULFATE [Concomitant]
     Indication: PAIN
  2. UNKNOWN EYE DROPS [Concomitant]
     Indication: DRY EYE
     Route: 047
  3. CRESTOR [Concomitant]
     Indication: BLOOD CHOLESTEROL INCREASED
  4. SYNTHROID [Suspect]
     Indication: THYROID NEOPLASM
     Dates: start: 20100301

REACTIONS (3)
  - HYPERHIDROSIS [None]
  - SKIN ODOUR ABNORMAL [None]
  - BLOOD THYROID STIMULATING HORMONE ABNORMAL [None]
